FAERS Safety Report 4740322-8 (Version None)
Quarter: 2005Q3

REPORT INFORMATION
  Report Type: 
  Country: None (occurrence: None)
  Receive Date: 20050805
  Receipt Date: 20050726
  Transmission Date: 20060218
  Serious: Yes (Hospitalization)
  Sender: FDA-Public Use
  Company Number: 2005106294

PATIENT
  Age: 53 Year
  Sex: Female

DRUGS (8)
  1. ATARAX [Suspect]
     Indication: ANXIETY
     Dosage: 25 MG (1 D),ORAL
     Route: 048
     Dates: start: 20041201
  2. ISONIAZID [Suspect]
     Indication: TUBERCULOSIS
     Dosage: 300 MG (1 D),ORAL
     Route: 048
     Dates: start: 20050412
  3. OMEPRAZOLE [Suspect]
     Indication: GASTRITIS
     Dosage: 20 MG (1 D),ORAL
     Route: 048
     Dates: start: 20050301, end: 20050629
  4. ETHAMBUTOL HCL [Suspect]
     Indication: TUBERCULOSIS
     Dosage: 1 GRAM (1 D), ORAL
     Route: 048
     Dates: start: 20050414
  5. NICOTINAMIDE [Suspect]
     Indication: MALNUTRITION
     Dosage: ORAL
     Route: 048
     Dates: start: 20041201
  6. RIFAMPICIAN (RIFAMPICIAN) [Suspect]
     Indication: TUBERCULOSIS
     Dosage: 600 MG (1 D),ORAL
     Route: 048
     Dates: start: 20050413
  7. FOLIC ACID [Concomitant]
  8. VITAMIN B1 AND B6 (PYRIDOXTINE, THIAMINE) [Concomitant]

REACTIONS (4)
  - ANAEMIA [None]
  - DISSEMINATED TUBERCULOSIS [None]
  - GASTRITIS [None]
  - NEUTROPENIA [None]
